FAERS Safety Report 6962840-4 (Version None)
Quarter: 2010Q3

REPORT INFORMATION
  Report Type: 
  Country: None (occurrence: None)
  Receive Date: 20100823
  Receipt Date: 20100602
  Transmission Date: 20110219
  Serious: No
  Sender: FDA-Public Use
  Company Number: 013234

PATIENT
  Sex: Male
  Weight: 91 kg

DRUGS (8)
  1. CIMZIA [Suspect]
     Indication: CROHN'S DISEASE
     Dosage: 400 MG 1X/4 WEEKS, TOOK A BOOSTER DOSE ON 31-MAY-2010  SUBCUTANEOUS
     Route: 058
     Dates: start: 20090801
  2. MELOXICAM [Concomitant]
  3. ATENOLOL [Concomitant]
  4. FOLIC ACID [Concomitant]
  5. FELODIPINE [Concomitant]
  6. VITAMIN D [Concomitant]
  7. MERCAPTOPURINE [Concomitant]
  8. CALCIUM [Concomitant]

REACTIONS (1)
  - DRUG INEFFECTIVE [None]
